FAERS Safety Report 6934339-2 (Version None)
Quarter: 2010Q3

REPORT INFORMATION
  Report Type: 
  Country: None (occurrence: None)
  Receive Date: 20100820
  Receipt Date: 20100812
  Transmission Date: 20110219
  Serious: Yes (Hospitalization)
  Sender: FDA-Public Use
  Company Number: A0875561A

PATIENT
  Age: 74 Year
  Sex: Male

DRUGS (2)
  1. TYKERB [Suspect]
     Dosage: 5TAB CYCLIC
     Route: 048
     Dates: start: 20100601
  2. UNKNOWN SUPPLEMENT [Concomitant]

REACTIONS (7)
  - CARDIAC DISORDER [None]
  - DECREASED APPETITE [None]
  - DIARRHOEA [None]
  - DYSPNOEA [None]
  - FATIGUE [None]
  - THROMBOSIS [None]
  - VASCULAR GRAFT [None]
